FAERS Safety Report 9171060 (Version 8)
Quarter: 2013Q3

REPORT INFORMATION
  Report Type: Report from Study
  Country: CA (occurrence: CA)
  Receive Date: 20130319
  Receipt Date: 20130827
  Transmission Date: 20140515
  Serious: Yes (Other)
  Sender: FDA-Public Use
  Company Number: CA-ROCHE-1156702

PATIENT
  Age: 71 Year
  Sex: Female
  Weight: 83 kg

DRUGS (16)
  1. ACTEMRA [Suspect]
     Indication: RHEUMATOID ARTHRITIS
     Route: 042
     Dates: start: 20120921
  2. ACTEMRA [Suspect]
     Route: 042
     Dates: start: 20121113, end: 20130404
  3. METHOTREXATE [Concomitant]
     Dosage: 8 PILLS
     Route: 058
  4. FOLIC ACID [Concomitant]
     Route: 065
  5. LORAZEPAM [Concomitant]
     Route: 065
  6. SALBUTAMOL [Concomitant]
     Dosage: 3 PUFFS PER DAY
     Route: 065
  7. BETAHISTINE [Concomitant]
     Route: 065
  8. SENNA [Concomitant]
     Indication: CONSTIPATION
  9. NOVO-GESIC [Concomitant]
     Route: 065
  10. METFORMIN [Concomitant]
     Route: 065
  11. PREDNISONE [Concomitant]
  12. APO-GLYBURIDE [Concomitant]
     Route: 065
  13. FUROSEMIDE [Concomitant]
     Route: 065
  14. FOSAMAX [Concomitant]
     Route: 065
  15. LIPIDIL [Concomitant]
  16. PANTOLOC [Concomitant]

REACTIONS (14)
  - Drug ineffective [Unknown]
  - Arthralgia [Not Recovered/Not Resolved]
  - Asthenia [Not Recovered/Not Resolved]
  - Hot flush [Not Recovered/Not Resolved]
  - Pain in extremity [Not Recovered/Not Resolved]
  - Musculoskeletal pain [Not Recovered/Not Resolved]
  - Neck pain [Recovering/Resolving]
  - Oedema [Not Recovered/Not Resolved]
  - Arthralgia [Not Recovered/Not Resolved]
  - Joint swelling [Not Recovered/Not Resolved]
  - Oedema peripheral [Not Recovered/Not Resolved]
  - Oedema peripheral [Not Recovered/Not Resolved]
  - Musculoskeletal stiffness [Not Recovered/Not Resolved]
  - Knee operation [Unknown]
